FAERS Safety Report 8412832-3 (Version None)
Quarter: 2012Q2

REPORT INFORMATION
  Report Type: 
  Country: None (occurrence: None)
  Receive Date: 20120605
  Receipt Date: 20120524
  Transmission Date: 20120825
  Serious: No
  Sender: FDA-Public Use
  Company Number: US-AMGEN-USASP2012032752

PATIENT
  Age: 39 Year
  Sex: Female

DRUGS (3)
  1. ENBREL [Suspect]
     Indication: PSORIASIS
  2. ENBREL [Suspect]
     Indication: RHEUMATOID ARTHRITIS
     Dosage: 50 MG, QWK
     Dates: start: 20120224
  3. ENBREL [Suspect]
     Indication: PSORIATIC ARTHROPATHY

REACTIONS (4)
  - PAIN [None]
  - OROPHARYNGEAL PAIN [None]
  - THROAT IRRITATION [None]
  - BODY TEMPERATURE INCREASED [None]
